FAERS Safety Report 7672186-7 (Version None)
Quarter: 2011Q3

REPORT INFORMATION
  Report Type: 
  Country: None (occurrence: None)
  Receive Date: 20110809
  Receipt Date: 20110805
  Transmission Date: 20111222
  Serious: Yes (Life-Threatening, Hospitalization, Other)
  Sender: FDA-Public Use
  Company Number: PHFR2011IE03809

PATIENT
  Sex: Male

DRUGS (5)
  1. VENLAFAXINE [Concomitant]
     Dosage: 225 MG, QD IN THE MORNING
  2. CLONAZEPAM [Suspect]
     Dosage: 0.5 MG X 40+
     Route: 048
     Dates: start: 20100701
  3. CLOZAPINE [Suspect]
     Dosage: 350 MG/DAY
     Route: 048
     Dates: start: 20020121
  4. CLOZAPINE [Suspect]
     Dosage: 200 MG/DAY
     Route: 048
  5. CLONAZEPAM [Suspect]
     Dosage: 2 X 0.5 MG NOCTE
     Route: 048
     Dates: start: 20071122, end: 20100601

REACTIONS (4)
  - DECREASED APPETITE [None]
  - OVERDOSE [None]
  - DEPRESSION [None]
  - SELF ESTEEM DECREASED [None]
